FAERS Safety Report 5224863-5 (Version None)
Quarter: 2007Q1

REPORT INFORMATION
  Report Type: 
  Country: None (occurrence: None)
  Receive Date: 20070131
  Receipt Date: 20070119
  Transmission Date: 20070707
  Serious: Yes (Hospitalization)
  Sender: FDA-Public Use
  Company Number: CS-NOVOPROD-260278

PATIENT
  Age: 11 Year
  Sex: Female
  Weight: 40.3 kg

DRUGS (2)
  1. NOVORAPID FLEXPEN [Suspect]
     Indication: DIABETES MELLITUS INSULIN-DEPENDENT
     Dosage: 23 IU, QD
     Route: 058
     Dates: start: 20060118
  2. LEVEMIR [Suspect]
     Indication: DIABETES MELLITUS INSULIN-DEPENDENT
     Dosage: 17 IU, QD
     Route: 058
     Dates: start: 20060925

REACTIONS (5)
  - ABDOMINAL PAIN UPPER [None]
  - DIABETIC KETOACIDOSIS [None]
  - NAUSEA [None]
  - PHARYNGITIS STREPTOCOCCAL [None]
  - PHARYNGOLARYNGEAL PAIN [None]
